FAERS Safety Report 18704985 (Version 1)
Quarter: 2021Q1

REPORT INFORMATION
  Report Type: Spontaneous
  Country: US (occurrence: US)
  Receive Date: 20210106
  Receipt Date: 20210106
  Transmission Date: 20210419
  Serious: No
  Sender: FDA-Public Use
  Company Number: US-ELI_LILLY_AND_COMPANY-US202012010153

PATIENT
  Sex: Female

DRUGS (1)
  1. EMGALITY [Suspect]
     Active Substance: GALCANEZUMAB-GNLM
     Indication: PRODUCT USED FOR UNKNOWN INDICATION
     Dosage: 240 MG, SINGLE
     Route: 065
     Dates: start: 20201124

REACTIONS (14)
  - Photosensitivity reaction [Unknown]
  - Nausea [Unknown]
  - Injection site irritation [Unknown]
  - Injection site bruising [Unknown]
  - Injection site erythema [Not Recovered/Not Resolved]
  - Injection site haemorrhage [Unknown]
  - Screaming [Unknown]
  - Tremor [Unknown]
  - Headache [Unknown]
  - Injection site discolouration [Unknown]
  - Anxiety [Unknown]
  - Panic reaction [Unknown]
  - Discomfort [Unknown]
  - Injection site pain [Not Recovered/Not Resolved]
